FAERS Safety Report 10186299 (Version 4)
Quarter: 2014Q2

REPORT INFORMATION
  Report Type: Spontaneous
  Country: CZ (occurrence: CZ)
  Receive Date: 20140521
  Receipt Date: 20140604
  Transmission Date: 20141212
  Serious: Yes (Life-Threatening, Hospitalization, Other)
  Sender: FDA-Public Use
  Company Number: CZ-ASTRAZENECA-2014SE34699

PATIENT
  Age: 23180 Day
  Sex: Female

DRUGS (18)
  1. METOPROLOL [Suspect]
     Route: 048
  2. CORDARONE [Suspect]
     Indication: ATRIAL FLUTTER
     Route: 042
     Dates: start: 20130830, end: 20130901
  3. CORDARONE [Suspect]
     Indication: ATRIAL FLUTTER
     Route: 048
     Dates: start: 20130902
  4. DIGOXIN [Suspect]
     Indication: CARDIOMEGALY
     Route: 048
  5. PROCORALAN [Suspect]
     Indication: CARDIAC FAILURE
     Route: 048
     Dates: start: 20140306, end: 20140503
  6. AZD6140 CODE NOT BROKEN [Suspect]
     Indication: CORONARY ARTERY DISEASE
     Route: 048
     Dates: start: 20110831, end: 20130303
  7. AZD6140 CODE NOT BROKEN [Suspect]
     Indication: CORONARY ARTERY DISEASE
     Dosage: MODIFIED STUDY TREATMENT IN COMBINATION WITH CLOPIDOGREL/PLACEBO
     Route: 048
     Dates: start: 20130304, end: 20130911
  8. AZD6140 CODE NOT BROKEN [Suspect]
     Indication: CORONARY ARTERY DISEASE
     Route: 048
     Dates: start: 20130912, end: 20140415
  9. CLOPIDOGREL CODE NOT BROKEN [Suspect]
     Indication: ACUTE CORONARY SYNDROME
     Route: 048
     Dates: start: 20130304, end: 20130911
  10. MILURIT [Concomitant]
     Indication: HYPERURICAEMIA
     Route: 048
     Dates: start: 20130226
  11. ATRAM [Concomitant]
     Indication: CARDIAC FAILURE CONGESTIVE
     Route: 048
  12. VEROSPIRON [Concomitant]
     Indication: CARDIAC FAILURE CONGESTIVE
     Route: 048
  13. LIPANTHYL [Concomitant]
     Indication: DYSLIPIDAEMIA
     Route: 048
     Dates: start: 20140226
  14. FUROSEMIDE [Concomitant]
     Indication: CARDIAC FAILURE CONGESTIVE
     Route: 048
  15. ROSUCARD [Concomitant]
     Indication: DYSLIPIDAEMIA
     Route: 048
     Dates: start: 20130903
  16. STACYL [Concomitant]
     Indication: CORONARY ARTERY DISEASE
     Route: 048
     Dates: start: 20130916
  17. ASA [Concomitant]
     Route: 048
  18. LOZAP [Concomitant]
     Indication: HYPERTENSION
     Dates: end: 20140430

REACTIONS (1)
  - Ventricular fibrillation [Recovered/Resolved]
